FAERS Safety Report 6946020-4 (Version None)
Quarter: 2010Q3

REPORT INFORMATION
  Report Type: 
  Country: None (occurrence: None)
  Receive Date: 20100827
  Receipt Date: 20100222
  Transmission Date: 20110219
  Serious: No
  Sender: FDA-Public Use
  Company Number: A0840549A

PATIENT
  Sex: Female

DRUGS (2)
  1. ZOVIRAX [Suspect]
     Dosage: 15G UNKNOWN
     Route: 065
  2. PLAVIX [Concomitant]

REACTIONS (3)
  - EYE SWELLING [None]
  - PRODUCT QUALITY ISSUE [None]
  - SWELLING FACE [None]
